FAERS Safety Report 5051454-1 (Version None)
Quarter: 2006Q3

REPORT INFORMATION
  Report Type: 
  Country: None (occurrence: None)
  Receive Date: 20060710
  Receipt Date: 20060628
  Transmission Date: 20061208
  Serious: Yes (Death, Other)
  Sender: FDA-Public Use
  Company Number: A021138

PATIENT
  Age: 48 Year
  Sex: Female

DRUGS (4)
  1. ZOLOFT [Suspect]
     Indication: DRUG USE FOR UNKNOWN INDICATION
     Dosage: 150 MG (50 MG, 3 IN 1 D) ORAL
     Route: 048
     Dates: start: 19980101
  2. SKELAN (CARISOPRODOL, PHENYLBUTAZONE CALCIUM) [Concomitant]
  3. PREMARIN [Concomitant]
  4. VICODIN [Concomitant]

REACTIONS (17)
  - ABDOMINAL INJURY [None]
  - AORTIC INJURY [None]
  - CHEST INJURY [None]
  - CONTUSION [None]
  - DRUG TOXICITY [None]
  - FALL [None]
  - HAEMATOMA [None]
  - HAEMOPNEUMOTHORAX [None]
  - HEAD INJURY [None]
  - HEPATIC TRAUMA [None]
  - LUNG INJURY [None]
  - MYOCARDIAL INFARCTION [None]
  - ROAD TRAFFIC ACCIDENT [None]
  - SEDATION [None]
  - SKULL FRACTURE [None]
  - SUBARACHNOID HAEMORRHAGE [None]
  - THORACIC VERTEBRAL FRACTURE [None]
